FAERS Safety Report 4602513-6 (Version None)
Quarter: 2005Q1

REPORT INFORMATION
  Report Type: 
  Country: None (occurrence: None)
  Receive Date: 20050307
  Receipt Date: 20050222
  Transmission Date: 20050727
  Serious: Yes (Other)
  Sender: FDA-Public Use
  Company Number: US-2005-001874

PATIENT
  Age: 50 Year
  Sex: Female

DRUGS (6)
  1. BETASERON [Suspect]
     Indication: RELAPSING-REMITTING MULTIPLE SCLEROSIS
     Dosage: 8 MIU, EVERY 2D, SUBCUTANEOUS
     Route: 058
     Dates: start: 20020301
  2. PRILOSEC [Concomitant]
  3. ZESTRIL [Concomitant]
  4. LEXAPRO [Concomitant]
  5. XANAX [Concomitant]
  6. HORMONES AND RELATED AGENTS [Concomitant]

REACTIONS (4)
  - BLOOD GLUCOSE INCREASED [None]
  - DIABETES MELLITUS NON-INSULIN-DEPENDENT [None]
  - INJECTION SITE ERYTHEMA [None]
  - MULTIPLE SCLEROSIS [None]
